FAERS Safety Report 13388788 (Version 3)
Quarter: 2017Q3

REPORT INFORMATION
  Report Type: Spontaneous
  Country: MX (occurrence: MX)
  Receive Date: 20170330
  Receipt Date: 20170711
  Transmission Date: 20171127
  Serious: Yes (Other)
  Sender: FDA-Public Use
  Company Number: ALCN2016MX007163

PATIENT
  Age: 69 Year
  Sex: Male

DRUGS (10)
  1. MOXIFLOXACIN. [Suspect]
     Active Substance: MOXIFLOXACIN
     Indication: EYE INFECTION
     Dosage: 1 DF, QH
     Route: 047
  2. CEFTAZIDIME. [Suspect]
     Active Substance: CEFTAZIDIME
     Indication: EYE INFECTION
     Dosage: 3 DF, ONCE/SINGLE
     Route: 031
  3. DEXAMETHASONE. [Suspect]
     Active Substance: DEXAMETHASONE
     Dosage: 1 GTT, Q2H
     Route: 047
  4. MOXIFLOXACIN. [Suspect]
     Active Substance: MOXIFLOXACIN
     Indication: KERATITIS BACTERIAL
     Dosage: 1 GTT, QH
     Route: 047
  5. MOXIFLOXACIN. [Suspect]
     Active Substance: MOXIFLOXACIN
     Dosage: 1 GTT, Q2H
     Route: 047
  6. VANCOMYCIN [Suspect]
     Active Substance: VANCOMYCIN
     Indication: EYE INFECTION
     Dosage: 1.0 MG, ONCE/SINGLE
     Route: 031
  7. VANCOMYCIN [Suspect]
     Active Substance: VANCOMYCIN
     Dosage: 0.5 MG, QH
     Route: 047
  8. DEXAMETHASONE. [Suspect]
     Active Substance: DEXAMETHASONE
     Indication: EYE INFECTION
     Dosage: 3 DF, ONCE/SINGLE
     Route: 031
  9. TETRACYCLINE [Suspect]
     Active Substance: TETRACYCLINE
     Indication: EYE INFECTION
     Dosage: UNK
     Route: 062
  10. DEXAMETHASONE. [Suspect]
     Active Substance: DEXAMETHASONE
     Indication: KERATITIS BACTERIAL
     Dosage: 1 GTT, QH
     Route: 047

REACTIONS (3)
  - Drug ineffective [Unknown]
  - Corneal perforation [Not Recovered/Not Resolved]
  - Ulcerative keratitis [Not Recovered/Not Resolved]
